FAERS Safety Report 16557293 (Version 1)
Quarter: 2019Q3

REPORT INFORMATION
  Report Type: Spontaneous
  Country: JP (occurrence: JP)
  Receive Date: 20190711
  Receipt Date: 20190711
  Transmission Date: 20191004
  Serious: Yes (Hospitalization, Other)
  Sender: FDA-Public Use
  Company Number: JP-PFIZER INC-2019282145

PATIENT
  Age: 68 Year
  Sex: Male
  Weight: 89 kg

DRUGS (9)
  1. IMIDAPRIL [Concomitant]
     Active Substance: IMIDAPRIL
     Dosage: UNK
  2. AFINITOR [Suspect]
     Active Substance: EVEROLIMUS
     Indication: RENAL CANCER
     Dosage: 5 MG, 2X/DAY
     Route: 048
     Dates: start: 20181105, end: 20181218
  3. OLMESARTAN [Concomitant]
     Active Substance: OLMESARTAN
     Dosage: UNK
  4. INLYTA [Suspect]
     Active Substance: AXITINIB
     Indication: RENAL CANCER
     Dosage: 5 MG, 2X/DAY
     Route: 048
     Dates: start: 20190319, end: 20190403
  5. AMLODIPINE [Concomitant]
     Active Substance: AMLODIPINE BESYLATE
     Dosage: UNK
  6. OPDIVO [Suspect]
     Active Substance: NIVOLUMAB
     Indication: RENAL CANCER
     Dosage: 278 MG, DAILY
     Route: 041
     Dates: start: 20180625, end: 20181002
  7. KALLIDINOGENASE [Concomitant]
     Active Substance: KALLIDINOGENASE
     Dosage: UNK
  8. CARBAZOCHROME SODIUM SULFONATE [Concomitant]
     Active Substance: CARBAZOCHROME SODIUM SULFONATE
     Dosage: UNK
  9. CELIPROLOL [Concomitant]
     Active Substance: CELIPROLOL
     Dosage: UNK

REACTIONS (1)
  - Pulmonary alveolar haemorrhage [Recovered/Resolved]

NARRATIVE: CASE EVENT DATE: 20190404
